FAERS Safety Report 12188451 (Version 2)
Quarter: 2016Q2

REPORT INFORMATION
  Report Type: Spontaneous
  Country: US (occurrence: US)
  Receive Date: 20160317
  Receipt Date: 20160418
  Transmission Date: 20160815
  Serious: Yes (Other)
  Sender: FDA-Public Use
  Company Number: US-ROXANE LABORATORIES, INC.-2016-RO-00482RO

PATIENT
  Age: 65 Year
  Sex: Female
  Weight: 63 kg

DRUGS (8)
  1. MYCOPHENOLATE MOFETIL (CAPSULES) USP [Suspect]
     Active Substance: MYCOPHENOLATE MOFETIL
     Indication: RENAL TRANSPLANT
     Dosage: 2000 MG
     Route: 048
  2. MYCOPHENOLATE MOFETIL (CAPSULES) USP [Suspect]
     Active Substance: MYCOPHENOLATE MOFETIL
     Dosage: 1500 MG
     Route: 048
     Dates: start: 20140708
  3. MYCOPHENOLATE MOFETIL (CAPSULES) USP [Suspect]
     Active Substance: MYCOPHENOLATE MOFETIL
     Dosage: 500 MG
     Route: 048
     Dates: start: 20150825, end: 20151120
  4. BASILIXIMAB [Suspect]
     Active Substance: BASILIXIMAB
     Indication: RENAL TRANSPLANT
     Route: 065
  5. GEODON [Suspect]
     Active Substance: ZIPRASIDONE HYDROCHLORIDE\ZIPRASIDONE MESYLATE
     Dosage: 40 MG
     Route: 048
     Dates: start: 20151214
  6. ASKP1240 [Suspect]
     Active Substance: BLESELUMAB
     Indication: RENAL TRANSPLANT
     Route: 042
     Dates: start: 20131003, end: 20160209
  7. GEODON [Suspect]
     Active Substance: ZIPRASIDONE HYDROCHLORIDE\ZIPRASIDONE MESYLATE
     Indication: SCHIZOPHRENIA
     Dosage: 80 MG
     Route: 048
  8. MYCOPHENOLATE MOFETIL (CAPSULES) USP [Suspect]
     Active Substance: MYCOPHENOLATE MOFETIL
     Dosage: 1000 MG
     Route: 048
     Dates: start: 20140923

REACTIONS (1)
  - Agranulocytosis [Not Recovered/Not Resolved]

NARRATIVE: CASE EVENT DATE: 20160105
